FAERS Safety Report 10082633 (Version 1)
Quarter: 2014Q2

REPORT INFORMATION
  Report Type: Spontaneous
  Country: GB (occurrence: GB)
  Receive Date: 20140416
  Receipt Date: 20140416
  Transmission Date: 20141212
  Serious: Yes (Other)
  Sender: FDA-Public Use
  Company Number: PHHY2014GB044506

PATIENT
  Age: 37 Year
  Sex: Female
  Weight: 68 kg

DRUGS (7)
  1. DEXAMETHASONE [Suspect]
     Indication: PROPHYLAXIS OF NAUSEA AND VOMITING
     Dosage: 6.6 MG
     Route: 042
     Dates: start: 20140318, end: 20140318
  2. SYNTOCINON [Suspect]
     Indication: EVACUATION OF RETAINED PRODUCTS OF CONCEPTION
     Dosage: 5 IU
     Route: 042
     Dates: start: 20140318, end: 20140318
  3. DICLOFENAC [Suspect]
     Indication: ANALGESIC THERAPY
     Dosage: 75 MG
     Route: 042
     Dates: start: 20140318, end: 20140318
  4. PARACETAMOL [Suspect]
     Indication: ANALGESIC THERAPY
     Dosage: 1 MG
     Route: 042
     Dates: start: 20140318, end: 20140318
  5. FENTANYL [Suspect]
     Indication: INDUCTION OF ANAESTHESIA
     Dosage: 125 UG
     Route: 042
     Dates: start: 20140318, end: 20140318
  6. GRANISETRON [Suspect]
     Indication: PROPHYLAXIS OF NAUSEA AND VOMITING
     Dosage: 1 MG
     Route: 042
     Dates: start: 20140318, end: 20140318
  7. PROPOFOL [Suspect]
     Indication: INDUCTION OF ANAESTHESIA
     Dosage: 250 MG
     Route: 042
     Dates: start: 20140318, end: 20140318

REACTIONS (4)
  - Hypotension [Recovered/Resolved]
  - Bradycardia [Recovered/Resolved]
  - Lip swelling [Recovered/Resolved]
  - Periorbital oedema [Recovered/Resolved]
